FAERS Safety Report 17866342 (Version 1)
Quarter: 2020Q2

REPORT INFORMATION
  Report Type: Spontaneous
  Country: GR (occurrence: GR)
  Receive Date: 20200605
  Receipt Date: 20200605
  Transmission Date: 20200714
  Serious: Yes (Hospitalization)
  Sender: FDA-Public Use
  Company Number: GR-PFIZER INC-2020217770

PATIENT
  Age: 67 Year
  Sex: Male

DRUGS (2)
  1. LORVIQUA [Suspect]
     Active Substance: LORLATINIB
     Indication: NON-SMALL CELL LUNG CANCER
     Dosage: 50 MG, DAILY
     Dates: start: 2020, end: 202005
  2. CORTISONE [Concomitant]
     Active Substance: CORTISONE

REACTIONS (1)
  - Papilloedema [Unknown]

NARRATIVE: CASE EVENT DATE: 2020
